FAERS Safety Report 9758402 (Version 2)
Quarter: 2013Q4

REPORT INFORMATION
  Report Type: Spontaneous
  Country: US (occurrence: US)
  Receive Date: 20131216
  Receipt Date: 20131216
  Transmission Date: 20140711
  Serious: Yes (Hospitalization)
  Sender: FDA-Public Use
  Company Number: US-BEH-2013038480

PATIENT
  Age: 31 Year
  Sex: Male
  Weight: 108 kg

DRUGS (1)
  1. MONONINE [Suspect]
     Indication: HAEMORRHAGE

REACTIONS (2)
  - Haematoma [Recovered/Resolved]
  - Arthralgia [Recovered/Resolved]
